FAERS Safety Report 5544125-6 (Version None)
Quarter: 2007Q4

REPORT INFORMATION
  Report Type: 
  Country: None (occurrence: None)
  Receive Date: 20071206
  Receipt Date: 20071121
  Transmission Date: 20080405
  Serious: Yes (Hospitalization)
  Sender: FDA-Public Use
  Company Number: 2007002294

PATIENT
  Age: 75 Year
  Sex: Male
  Weight: 73 kg

DRUGS (2)
  1. ERLOTINIB (ERLOTINIB HCL) (TABLET) (ERLOTINIB HCL) [Suspect]
     Dosage: (150 MG, QD), ORAL
     Route: 048
     Dates: start: 20070726
  2. SU11248 [Suspect]
     Indication: NON-SMALL CELL LUNG CANCER
     Dosage: (37.6 MG, QD), ORAL
     Route: 048
     Dates: start: 20070726

REACTIONS (2)
  - DEHYDRATION [None]
  - OESOPHAGITIS [None]
